FAERS Safety Report 4822628-7 (Version None)
Quarter: 2005Q4

REPORT INFORMATION
  Report Type: 
  Country: None (occurrence: None)
  Receive Date: 20051103
  Receipt Date: 20051103
  Transmission Date: 20060501
  Serious: Yes (Hospitalization)
  Sender: FDA-Public Use
  Company Number: None

PATIENT
  Sex: Male
  Weight: 74.4 kg

DRUGS (1)
  1. TAXOL [Suspect]

REACTIONS (3)
  - CARDIAC PROCEDURE COMPLICATION [None]
  - COMPLICATION OF DEVICE INSERTION [None]
  - DEVICE MALFUNCTION [None]
